FAERS Safety Report 6330075-4 (Version None)
Quarter: 2009Q3

REPORT INFORMATION
  Report Type: 
  Country: None (occurrence: None)
  Receive Date: 20090827
  Receipt Date: 20070612
  Transmission Date: 20100115
  Serious: Yes (Other)
  Sender: FDA-Public Use
  Company Number: US-ASTRAZENECA-2006UW23951

PATIENT
  Age: 24185 Day
  Sex: Male
  Weight: 91.6 kg

DRUGS (12)
  1. SEROQUEL [Suspect]
     Indication: MENTAL DISORDER
     Dosage: 25 MG, 100 MG, 200 MG
     Route: 048
     Dates: start: 20040101, end: 20060101
  2. SEROQUEL [Suspect]
     Dosage: 100 MG TO 300 MG
     Route: 048
     Dates: start: 20041018
  3. ABILIFY [Concomitant]
  4. GEODON [Concomitant]
  5. RISPERDAL [Concomitant]
  6. XANAX [Concomitant]
     Route: 048
     Dates: start: 20041018
  7. ASPIRIN [Concomitant]
     Dates: start: 20030428
  8. ZYPREXA [Concomitant]
     Dosage: 80 MG X 2, QHS
     Dates: start: 20020717
  9. FLEXERIL [Concomitant]
     Dates: start: 20070111
  10. EFFEXOR [Concomitant]
     Dates: start: 20070111
  11. LORTAB [Concomitant]
     Dosage: 10 / 325 BID
     Dates: start: 20070111
  12. VYTORIN [Concomitant]
     Dosage: 10 / 20 QD
     Dates: start: 20070111

REACTIONS (3)
  - DIABETIC NEUROPATHY [None]
  - NEUROPATHY PERIPHERAL [None]
  - TYPE 2 DIABETES MELLITUS [None]
